FAERS Safety Report 24845795 (Version 2)
Quarter: 2025Q1

REPORT INFORMATION
  Report Type: Other
  Country: US (occurrence: US)
  Receive Date: 20250115
  Receipt Date: 20250206
  Transmission Date: 20250409
  Serious: No
  Sender: TRAVERE THERAPEUTICS
  Company Number: US-TRAVERE-2024TVT01254

PATIENT
  Age: 54 Year
  Sex: Female

DRUGS (2)
  1. FILSPARI [Suspect]
     Active Substance: SPARSENTAN
     Indication: IgA nephropathy
     Dosage: 200MG 1 TABLET BY MOUTH, ONCE A DAY FOR DAYS 1-14
     Route: 048
     Dates: start: 20241124
  2. FILSPARI [Suspect]
     Active Substance: SPARSENTAN
     Dosage: 200 MG 2 TABLETS BY MOUTH, ONCE A DAY ON DAYS 15-30
     Route: 048

REACTIONS (6)
  - Abnormal sensation in eye [Unknown]
  - Hypertension [Unknown]
  - Dizziness [Unknown]
  - Nausea [Unknown]
  - Nightmare [Unknown]
  - Mental status changes [Unknown]

NARRATIVE: CASE EVENT DATE: 20241201
